FAERS Safety Report 7605756-2 (Version None)
Quarter: 2011Q3

REPORT INFORMATION
  Report Type: 
  Country: None (occurrence: None)
  Receive Date: 20110713
  Receipt Date: 20110608
  Transmission Date: 20111222
  Serious: Yes (Other)
  Sender: FDA-Public Use
  Company Number: CZ-JNJFOC-20110410754

PATIENT
  Age: 52 Year
  Sex: Male
  Weight: 102 kg

DRUGS (4)
  1. BELOSALIC [Concomitant]
     Route: 061
  2. REMICADE [Suspect]
     Indication: PSORIASIS
     Route: 042
     Dates: start: 20110201
  3. MEDROL [Concomitant]
  4. CLOBETASOL PROPIONATE [Concomitant]
     Route: 061

REACTIONS (1)
  - PSORIATIC ARTHROPATHY [None]
